FAERS Safety Report 12593416 (Version 2)
Quarter: 2018Q1

REPORT INFORMATION
  Report Type: Spontaneous
  Country: US (occurrence: US)
  Receive Date: 20160726
  Receipt Date: 20180123
  Transmission Date: 20180508
  Serious: No
  Sender: FDA-Public Use
  Company Number: US-AMGEN-USASP2016084983

PATIENT
  Age: 71 Year
  Sex: Male

DRUGS (1)
  1. REPATHA [Suspect]
     Active Substance: EVOLOCUMAB
     Indication: HYPERLIPIDAEMIA
     Dosage: UNK, Q2WK
     Route: 065

REACTIONS (5)
  - Sinus congestion [Unknown]
  - Wrong technique in product usage process [Unknown]
  - Influenza like illness [Unknown]
  - Decreased appetite [Unknown]
  - Nasopharyngitis [Unknown]
